FAERS Safety Report 14128832 (Version 4)
Quarter: 2018Q1

REPORT INFORMATION
  Report Type: Report from Study
  Country: None (occurrence: US)
  Receive Date: 20171026
  Receipt Date: 20180201
  Transmission Date: 20180508
  Serious: Yes (Hospitalization)
  Sender: FDA-Public Use
  Company Number: US-ABBVIE-17P-163-2134404-00

PATIENT
  Age: 80 Year
  Sex: Male
  Weight: 88.5 kg

DRUGS (26)
  1. VENCLEXTA [Suspect]
     Active Substance: VENETOCLAX
     Route: 048
     Dates: start: 20170909, end: 20170923
  2. AZACITIDINE. [Suspect]
     Active Substance: AZACITIDINE
     Dosage: DAILY FOR 7 DAYS OF ALL CYCLES, CYCLE=28 DAYS.
     Route: 042
     Dates: start: 20171009
  3. ALLOPURINOL. [Concomitant]
     Active Substance: ALLOPURINOL
     Indication: PROPHYLAXIS
     Route: 048
     Dates: start: 20170925
  4. HYTRIN [Concomitant]
     Active Substance: TERAZOSIN HYDROCHLORIDE
     Indication: HYPERTENSION
     Route: 048
     Dates: start: 20170924
  5. ALLOPURINOL. [Concomitant]
     Active Substance: ALLOPURINOL
     Indication: TUMOUR LYSIS SYNDROME
     Route: 048
     Dates: start: 20170906, end: 20170914
  6. ALLOPURINOL. [Concomitant]
     Active Substance: ALLOPURINOL
     Indication: PROPHYLAXIS
  7. ATORVASTATIN [Concomitant]
     Active Substance: ATORVASTATIN
     Indication: HYPERLIPIDAEMIA
  8. ACETAMINOPHEN. [Concomitant]
     Active Substance: ACETAMINOPHEN
     Indication: BONE PAIN
  9. GABAPENTIN. [Concomitant]
     Active Substance: GABAPENTIN
     Indication: PAIN PROPHYLAXIS
     Route: 048
     Dates: start: 20170924
  10. ATORVASTATIN [Concomitant]
     Active Substance: ATORVASTATIN
     Indication: CORONARY ARTERY DISEASE
     Route: 048
     Dates: start: 20170925
  11. VENCLEXTA [Suspect]
     Active Substance: VENETOCLAX
     Indication: ACUTE MYELOID LEUKAEMIA
     Route: 048
     Dates: start: 20170907, end: 20170908
  12. LOPRESSOR [Concomitant]
     Active Substance: METOPROLOL TARTRATE
     Indication: CHEST PAIN
     Route: 048
     Dates: start: 20170924
  13. VENCLEXTA [Suspect]
     Active Substance: VENETOCLAX
     Route: 048
     Dates: start: 20170928
  14. RANOLAZINE ER [Concomitant]
     Indication: CHEST PAIN
     Route: 048
     Dates: start: 20170924, end: 20170927
  15. MICAFUNGIN [Concomitant]
     Active Substance: MICAFUNGIN
     Indication: FEBRILE NEUTROPENIA
     Route: 042
     Dates: start: 20170926
  16. PANTOPRAZOLE [Concomitant]
     Active Substance: PANTOPRAZOLE
     Indication: ABDOMINAL DISCOMFORT
  17. VANCOMYCIN [Concomitant]
     Active Substance: VANCOMYCIN
     Indication: FEBRILE NEUTROPENIA
     Route: 042
     Dates: start: 20170924, end: 20170925
  18. CEFTRIAXONE. [Concomitant]
     Active Substance: CEFTRIAXONE
     Indication: FEBRILE NEUTROPENIA
     Route: 042
     Dates: start: 20170927
  19. ACETAMINOPHEN. [Concomitant]
     Active Substance: ACETAMINOPHEN
     Indication: PAIN IN EXTREMITY
  20. AZACITIDINE. [Suspect]
     Active Substance: AZACITIDINE
     Indication: ACUTE MYELOID LEUKAEMIA
     Dosage: DAILY FOR 7 DAYS OF ALL CYCLES, CYCLE=28 DAYS.
     Route: 042
     Dates: start: 20170907, end: 20170913
  21. DOCUSATE [Concomitant]
     Active Substance: DOCUSATE
     Indication: CONSTIPATION PROPHYLAXIS
     Route: 048
     Dates: start: 20170924
  22. PANTOPRAZOLE [Concomitant]
     Active Substance: PANTOPRAZOLE
     Indication: PROPHYLAXIS
     Route: 048
     Dates: start: 20170924
  23. ISOSORBIDE MONONITRATE. [Concomitant]
     Active Substance: ISOSORBIDE MONONITRATE
     Indication: CHEST PAIN
     Route: 048
     Dates: start: 20170926
  24. ACETAMINOPHEN. [Concomitant]
     Active Substance: ACETAMINOPHEN
     Indication: HEADACHE
     Route: 048
     Dates: start: 20170906
  25. ACETAMINOPHEN. [Concomitant]
     Active Substance: ACETAMINOPHEN
     Indication: NECK PAIN
  26. ACETAMINOPHEN. [Concomitant]
     Active Substance: ACETAMINOPHEN
     Indication: ANTIPYRESIS

REACTIONS (1)
  - Anorectal cellulitis [Recovered/Resolved]

NARRATIVE: CASE EVENT DATE: 20170930
